FAERS Safety Report 4491193-9 (Version None)
Quarter: 2004Q3

REPORT INFORMATION
  Report Type: 
  Country: None (occurrence: None)
  Receive Date: 20040927
  Receipt Date: 20040803
  Transmission Date: 20050211
  Serious: No
  Sender: FDA-Public Use
  Company Number: USA040874486

PATIENT
  Age: 17 Year
  Sex: Male

DRUGS (3)
  1. STRATTERA [Suspect]
     Indication: ATTENTION DEFICIT/HYPERACTIVITY DISORDER
     Dosage: 40 MG IN THE EVENING
     Dates: start: 20040701
  2. PROZAC [Suspect]
     Indication: DEPRESSION
     Dosage: 5 MG IN THE MORNING
     Dates: start: 19940101, end: 20040731
  3. TRAZODONE HCL [Concomitant]

REACTIONS (4)
  - AGGRESSION [None]
  - COUGH [None]
  - ERYTHEMA [None]
  - FEELING COLD [None]
